FAERS Safety Report 9818123 (Version 1)
Quarter: 2013Q4

REPORT INFORMATION
  Report Type: Spontaneous
  Country: US (occurrence: None)
  Receive Date: 20131223
  Receipt Date: 20131223
  Transmission Date: 20140711
  Serious: No
  Sender: FDA-Public Use
  Company Number: 219936

PATIENT
  Age: 48 Year
  Sex: Female

DRUGS (1)
  1. PICATO GEL [Suspect]
     Indication: ACTINIC KERATOSIS
     Dosage: (1 IN 1 D), DERMAL
     Dates: start: 20121211, end: 20121213

REACTIONS (2)
  - Application site swelling [None]
  - Eye swelling [None]
